FAERS Safety Report 25396372 (Version 3)
Quarter: 2025Q3

REPORT INFORMATION
  Report Type: Spontaneous
  Country: JP (occurrence: JP)
  Receive Date: 20250604
  Receipt Date: 20250723
  Transmission Date: 20251020
  Serious: Yes (Hospitalization)
  Sender: EISAI
  Company Number: JP-Eisai-202502665_LEN-RCC_P_1

PATIENT
  Sex: Male

DRUGS (7)
  1. LENVIMA [Suspect]
     Active Substance: LENVATINIB
     Indication: Renal cell carcinoma
     Dates: start: 202401, end: 202506
  2. LENVIMA [Suspect]
     Active Substance: LENVATINIB
  3. KEYTRUDA [Suspect]
     Active Substance: PEMBROLIZUMAB
     Indication: Renal cell carcinoma
     Dates: start: 202401, end: 202506
  4. KEYTRUDA [Suspect]
     Active Substance: PEMBROLIZUMAB
  5. PREDNISOLONE [Concomitant]
     Active Substance: PREDNISOLONE
     Indication: Autoimmune pancreatitis
  6. PREDNISOLONE [Concomitant]
     Active Substance: PREDNISOLONE
  7. PREDNISOLONE [Concomitant]
     Active Substance: PREDNISOLONE

REACTIONS (3)
  - Autoimmune pancreatitis [Recovering/Resolving]
  - Type 1 diabetes mellitus [Not Recovered/Not Resolved]
  - Biliary obstruction [Recovering/Resolving]

NARRATIVE: CASE EVENT DATE: 20250601
